FAERS Safety Report 24749851 (Version 2)
Quarter: 2025Q1

REPORT INFORMATION
  Report Type: Spontaneous
  Country: DE (occurrence: DE)
  Receive Date: 20241218
  Receipt Date: 20250116
  Transmission Date: 20250409
  Serious: Yes (Life-Threatening, Other)
  Sender: SAMSUNG BIOEPIS
  Company Number: DE-SAMSUNG BIOEPIS-SB-2024-38254

PATIENT
  Age: 14 Year

DRUGS (3)
  1. INFLIXIMAB [Suspect]
     Active Substance: INFLIXIMAB
     Indication: Product used for unknown indication
     Route: 042
  2. DIMETHINDENE MALEATE [Concomitant]
     Active Substance: DIMETHINDENE MALEATE
     Indication: Premedication
  3. CORTISONE [Concomitant]
     Active Substance: CORTISONE
     Indication: Premedication

REACTIONS (1)
  - Anaphylactic shock [Unknown]

NARRATIVE: CASE EVENT DATE: 20240904
